FAERS Safety Report 9065783 (Version 1)
Quarter: 2013Q1

REPORT INFORMATION
  Report Type: Spontaneous
  Country: US (occurrence: US)
  Receive Date: 20130214
  Receipt Date: 20130214
  Transmission Date: 20140127
  Serious: Yes (Hospitalization)
  Sender: FDA-Public Use
  Company Number: US-BAYER-2013-016986

PATIENT
  Age: 19 Year
  Sex: Female

DRUGS (7)
  1. YASMIN [Suspect]
     Indication: ENDOMETRIOSIS
  2. OCELLA [Suspect]
  3. ANAPROX DS [Concomitant]
     Indication: MUSCLE SPASMS
  4. NORCO [Concomitant]
     Indication: PAIN
  5. PONSTEL [Concomitant]
     Indication: MUSCLE SPASMS
  6. HYDROCODONE W/ACETAMINOPHEN [Concomitant]
     Dosage: 5-325
  7. MEFENAMIC ACID [Concomitant]
     Dosage: 250 MG, UNK

REACTIONS (1)
  - Deep vein thrombosis [Recovered/Resolved]
